FAERS Safety Report 4972672-4 (Version None)
Quarter: 2006Q1

REPORT INFORMATION
  Report Type: 
  Country: None (occurrence: None)
  Receive Date: 20060216
  Receipt Date: 20030818
  Transmission Date: 20060701
  Serious: Yes (Hospitalization, Other)
  Sender: FDA-Public Use
  Company Number: 2003IM000217

PATIENT
  Age: 64 Year
  Sex: Female
  Weight: 59 kg

DRUGS (5)
  1. INTERFERON GAMMA-1B [Suspect]
     Indication: OVARIAN CANCER
     Dosage: 100 UG, TIW, SUBCUTANEOUS
     Route: 058
     Dates: start: 20030121, end: 20030213
  2. CARBOPLATIN [Suspect]
     Indication: OVARIAN CANCER
     Dosage: 656 MG, Q21 DAYS, INTRAVENOUS
     Route: 042
     Dates: start: 20030121, end: 20030211
  3. PACLITAXEL [Suspect]
     Indication: OVARIAN CANCER
     Dosage: 289 MG, Q21 DAYS, INTRAVENOUS
     Route: 042
     Dates: start: 20030121, end: 20030211
  4. CALCIUM GLUCONATE [Concomitant]
  5. TYLENOL [Concomitant]

REACTIONS (3)
  - CONVULSION [None]
  - NAUSEA [None]
  - NEUTROPENIA [None]
